FAERS Safety Report 14585805 (Version 2)
Quarter: 2018Q2

REPORT INFORMATION
  Report Type: Spontaneous
  Country: US (occurrence: US)
  Receive Date: 20180301
  Receipt Date: 20180403
  Transmission Date: 20180711
  Serious: Yes (Hospitalization, Other)
  Sender: FDA-Public Use
  Company Number: US-ASTELLAS-2018US009838

PATIENT
  Age: 43 Year
  Sex: Male

DRUGS (3)
  1. MYCOPHENOLATE MOFETIL. [Concomitant]
     Active Substance: MYCOPHENOLATE MOFETIL
     Indication: LIVER TRANSPLANT
     Route: 065
  2. TACROLIMUS. [Suspect]
     Active Substance: TACROLIMUS
     Indication: LIVER TRANSPLANT
     Dosage: UNK UNK, UNKNOWN FREQ.(TROUGH LEVELS OF 6-10NG/DL)
     Route: 065
  3. THYMOGLOBULIN [Concomitant]
     Active Substance: LAPINE T-LYMPHOCYTE IMMUNE GLOBULIN
     Indication: LIVER TRANSPLANT
     Route: 065

REACTIONS (8)
  - Encephalopathy [Unknown]
  - Ascites [Recovered/Resolved]
  - Immunosuppressant drug level increased [Unknown]
  - Hepatic haematoma [Recovered/Resolved]
  - Escherichia infection [Unknown]
  - Haematoma infection [Recovered/Resolved]
  - Post procedural bile leak [Recovered/Resolved]
  - Peritonitis [Recovered/Resolved]
